FAERS Safety Report 9943258 (Version 1)
Quarter: 2014Q1

REPORT INFORMATION
  Report Type: Spontaneous
  Country: GB (occurrence: GB)
  Receive Date: 20140303
  Receipt Date: 20140303
  Transmission Date: 20141002
  Serious: Yes (Other)
  Sender: FDA-Public Use
  Company Number: GB-VERTEX PHARMACEUTICALS INC-2014-000902

PATIENT
  Sex: Male

DRUGS (1)
  1. KALYDECO [Suspect]
     Indication: CYSTIC FIBROSIS
     Dosage: 1 DF, BID
     Route: 048
     Dates: start: 201303

REACTIONS (1)
  - Pancytopenia [Not Recovered/Not Resolved]
